FAERS Safety Report 16056851 (Version 1)
Quarter: 2019Q2

REPORT INFORMATION
  Report Type: Spontaneous
  Country: US (occurrence: US)
  Receive Date: 20190311
  Receipt Date: 20190311
  Transmission Date: 20190711
  Serious: Yes (Hospitalization)
  Sender: FDA-Public Use
  Company Number: None

PATIENT
  Age: 68 Year
  Sex: Female

DRUGS (2)
  1. MATULANE [Suspect]
     Active Substance: PROCARBAZINE HYDROCHLORIDE
     Indication: BRAIN NEOPLASM
     Route: 048
     Dates: start: 20190204, end: 20190311
  2. GLEOSTINE [Suspect]
     Active Substance: LOMUSTINE
     Indication: BRAIN NEOPLASM
     Dosage: ?          OTHER FREQUENCY:EVERY 6 WEEKS;?
     Route: 048
     Dates: start: 20190128, end: 20190311

REACTIONS (1)
  - Seizure [None]

NARRATIVE: CASE EVENT DATE: 20190218
